FAERS Safety Report 26034399 (Version 1)
Quarter: 2025Q4

REPORT INFORMATION
  Report Type: Spontaneous
  Country: US (occurrence: US)
  Receive Date: 20251112
  Receipt Date: 20251112
  Transmission Date: 20260118
  Serious: Yes (Life-Threatening, Hospitalization)
  Sender: PROCTER AND GAMBLE
  Company Number: US-MLMSERVICE-20251029-PI691376-00029-1

PATIENT
  Age: 5 Year
  Sex: Female

DRUGS (2)
  1. ACETAMINOPHEN [Suspect]
     Active Substance: ACETAMINOPHEN
     Dosage: UNKNOWN QUANTITY OF ADULT-FORMULATION ACETAMINOPHEN, OF UNSPECIFIED STRENGTH
  2. SAFFLOWER OIL [Suspect]
     Active Substance: SAFFLOWER OIL
     Dosage: UNK

REACTIONS (25)
  - Acute hepatic failure [Recovering/Resolving]
  - Coagulopathy [Recovering/Resolving]
  - Encephalopathy [Recovered/Resolved]
  - Hypoglycaemia [Recovering/Resolving]
  - Brain oedema [Recovered/Resolved]
  - Accidental overdose [Unknown]
  - Intracranial pressure increased [Recovering/Resolving]
  - Hepatic artery thrombosis [Recovering/Resolving]
  - Transplant dysfunction [Recovering/Resolving]
  - Hyperbilirubinaemia [Recovering/Resolving]
  - Septic shock [Recovering/Resolving]
  - Enterococcal bacteraemia [Recovering/Resolving]
  - Exposure via ingestion [Unknown]
  - Vomiting [Recovering/Resolving]
  - Chills [Recovering/Resolving]
  - Gastrointestinal disorder [Recovering/Resolving]
  - Jaundice [Recovering/Resolving]
  - Aspartate aminotransferase increased [Recovering/Resolving]
  - Alanine aminotransferase increased [Recovering/Resolving]
  - Blood bilirubin increased [Recovering/Resolving]
  - International normalised ratio increased [Recovering/Resolving]
  - Hyperammonaemia [Recovering/Resolving]
  - Hypertransaminasaemia [Recovering/Resolving]
  - Cytomegalovirus infection [Recovering/Resolving]
  - Accidental exposure to product by child [Unknown]
